APPROVED DRUG PRODUCT: GATIFLOXACIN
Active Ingredient: GATIFLOXACIN
Strength: 0.5%
Dosage Form/Route: SOLUTION/DROPS;OPHTHALMIC
Application: A206446 | Product #001
Applicant: RISING PHARMA HOLDINGS INC
Approved: Jun 8, 2018 | RLD: No | RS: No | Type: DISCN